FAERS Safety Report 5158283-9 (Version None)
Quarter: 2006Q4

REPORT INFORMATION
  Report Type: 
  Country: None (occurrence: None)
  Receive Date: 20061121
  Receipt Date: 20061121
  Transmission Date: 20070319
  Serious: Yes (Hospitalization)
  Sender: FDA-Public Use
  Company Number: None

PATIENT
  Age: 42 Year
  Sex: Female

DRUGS (4)
  1. NEULASTA [Suspect]
     Indication: NEUTROPENIA
  2. EFFEXOR [Concomitant]
  3. ATIVAN [Concomitant]
  4. TYLENOL W/ CODEINE [Concomitant]

REACTIONS (1)
  - BONE PAIN [None]
